FAERS Safety Report 9376115 (Version 1)
Quarter: 2013Q2

REPORT INFORMATION
  Report Type: Spontaneous
  Country: US (occurrence: None)
  Receive Date: 20130628
  Receipt Date: 20130628
  Transmission Date: 20140414
  Serious: Yes (Other)
  Sender: FDA-Public Use
  Company Number: None

PATIENT
  Age: 53 Year
  Sex: Male
  Weight: 90.72 kg

DRUGS (11)
  1. DIVALPROEX SODIUM [Suspect]
     Indication: MANIA
     Route: 048
     Dates: start: 20100521, end: 20100524
  2. DIVALPROEX SODIUM [Suspect]
     Indication: BIPOLAR DISORDER
     Route: 048
     Dates: start: 20100521, end: 20100524
  3. BUPROPION HCL [Concomitant]
  4. LAMOTRIGINE [Concomitant]
  5. NEDOLOL [Concomitant]
  6. FISH OIL [Concomitant]
  7. MULTI-VITAMIN [Concomitant]
  8. PROBIOTIC [Concomitant]
  9. VITAMIN-B [Concomitant]
  10. QUINOLINE [Concomitant]
  11. MELATONIN [Concomitant]

REACTIONS (6)
  - Tremor [None]
  - Faecal incontinence [None]
  - Constipation [None]
  - Defaecation urgency [None]
  - Grimacing [None]
  - Excessive eye blinking [None]
